FAERS Safety Report 6643911-9 (Version None)
Quarter: 2010Q1

REPORT INFORMATION
  Report Type: 
  Country: None (occurrence: None)
  Receive Date: 20100317
  Receipt Date: 20100302
  Transmission Date: 20100710
  Serious: Yes (Other)
  Sender: FDA-Public Use
  Company Number: 2009EK000019

PATIENT
  Age: 37 Year
  Sex: Female
  Weight: 49 kg

DRUGS (12)
  1. CARDENE [Suspect]
     Indication: BLOOD PRESSURE INCREASED
     Dosage: 3 MG; IV
     Route: 042
  2. CARDENE [Suspect]
     Indication: HYPERTENSION
     Dosage: 3 MG; IV
     Route: 042
  3. LORAZEPAM [Concomitant]
  4. HYDROXYZINE [Concomitant]
  5. LACTATED RINGER'S [Concomitant]
  6. PROPOFOL [Concomitant]
  7. SUFENTANIL [Concomitant]
  8. ATRACURIUM BESYLATE [Concomitant]
  9. ISOFLURANE [Concomitant]
  10. OXYGEN [Concomitant]
  11. NITROUS OXIDE [Concomitant]
  12. NOREPINEPHRINE [Concomitant]

REACTIONS (3)
  - CHEST PAIN [None]
  - TROPONIN INCREASED [None]
  - VENTRICULAR HYPOKINESIA [None]
